FAERS Safety Report 6593553-9 (Version None)
Quarter: 2010Q1

REPORT INFORMATION
  Report Type: 
  Country: None (occurrence: None)
  Receive Date: 20100222
  Receipt Date: 20090725
  Transmission Date: 20100710
  Serious: No
  Sender: FDA-Public Use
  Company Number: US-BRISTOL-MYERS SQUIBB COMPANY-14708648

PATIENT
  Age: 51 Year
  Sex: Female
  Weight: 77 kg

DRUGS (14)
  1. ORENCIA [Suspect]
     Indication: RHEUMATOID ARTHRITIS
     Dates: start: 20081001
  2. DURAGESIC-100 [Concomitant]
  3. NORCO [Concomitant]
  4. PREVACID [Concomitant]
  5. NEURONTIN [Concomitant]
  6. ATARAX [Concomitant]
  7. PREDNISONE [Concomitant]
  8. METHOTREXATE [Concomitant]
  9. FOLIC ACID [Concomitant]
  10. ECOTRIN [Concomitant]
  11. FERROUS SULFATE TAB [Concomitant]
  12. ALPRAZOLAM [Concomitant]
  13. MULTI-VITAMIN [Concomitant]
  14. ULTRAM [Concomitant]

REACTIONS (3)
  - DRUG INEFFECTIVE [None]
  - PLATELET COUNT DECREASED [None]
  - SKIN EXFOLIATION [None]
